FAERS Safety Report 13598429 (Version 1)
Quarter: 2017Q2

REPORT INFORMATION
  Report Type: Spontaneous
  Country: US (occurrence: US)
  Receive Date: 20170531
  Receipt Date: 20170531
  Transmission Date: 20170830
  Serious: Yes (Other)
  Sender: FDA-Public Use
  Company Number: None

PATIENT
  Age: 35 Year
  Sex: Female
  Weight: 94.6 kg

DRUGS (1)
  1. RITUXAN [Suspect]
     Active Substance: RITUXIMAB
     Indication: RHEUMATOID ARTHRITIS
     Dosage: ?          OTHER FREQUENCY:ONCE;?
     Route: 040
     Dates: start: 20170512, end: 20170512

REACTIONS (6)
  - Scratch [None]
  - Pruritus [None]
  - Hypersensitivity [None]
  - Rash macular [None]
  - Throat irritation [None]
  - Erythema [None]

NARRATIVE: CASE EVENT DATE: 20170512
